FAERS Safety Report 7634725-1 (Version None)
Quarter: 2011Q3

REPORT INFORMATION
  Report Type: 
  Country: None (occurrence: None)
  Receive Date: 20110726
  Receipt Date: 20110715
  Transmission Date: 20111222
  Serious: Yes (Hospitalization)
  Sender: FDA-Public Use
  Company Number: US-BIOGENIDEC-2010BI020261

PATIENT
  Age: 58 Year
  Sex: Female

DRUGS (1)
  1. TYSABRI [Suspect]
     Indication: MULTIPLE SCLEROSIS
     Route: 042
     Dates: start: 20080311

REACTIONS (6)
  - INFLUENZA LIKE ILLNESS [None]
  - BACTERIAL INFECTION [None]
  - KIDNEY INFECTION [None]
  - NEPHROLITHIASIS [None]
  - URINARY TRACT INFECTION [None]
  - CYSTITIS [None]
